FAERS Safety Report 12643649 (Version 7)
Quarter: 2017Q4

REPORT INFORMATION
  Report Type: Spontaneous
  Country: US (occurrence: US)
  Receive Date: 20160811
  Receipt Date: 20171211
  Transmission Date: 20180320
  Serious: Yes (Hospitalization, Congenital Anomaly, Other)
  Sender: FDA-Public Use
  Company Number: PHHY2015US130624

PATIENT
  Sex: Male

DRUGS (1)
  1. ZOFRAN [Suspect]
     Active Substance: ONDANSETRON HYDROCHLORIDE
     Indication: FOETAL EXPOSURE DURING PREGNANCY
     Dosage: MOTHER^S DOSE: 4 MG, TWICE DAILY (BID)
     Route: 064

REACTIONS (21)
  - Atrioventricular septal defect [Unknown]
  - Pyrexia [Unknown]
  - Speech disorder developmental [Unknown]
  - Upper respiratory tract infection [Unknown]
  - Nasal inflammation [Unknown]
  - Patent ductus arteriosus [Unknown]
  - Choking [Recovered/Resolved]
  - Mitral valve incompetence [Unknown]
  - Pulmonary oedema [Unknown]
  - Cough [Unknown]
  - Dyspnoea [Unknown]
  - Congenital umbilical hernia [Unknown]
  - Left-to-right cardiac shunt [Unknown]
  - Foetal exposure during pregnancy [Unknown]
  - Jaundice neonatal [Unknown]
  - Pharyngitis [Unknown]
  - Haematuria [Unknown]
  - Malaise [Unknown]
  - Constipation [Unknown]
  - Cardiac murmur [Unknown]
  - Tricuspid valve incompetence [Unknown]
